FAERS Safety Report 8816781 (Version 1)
Quarter: 2012Q4

REPORT INFORMATION
  Report Type: Spontaneous
  Country: US (occurrence: None)
  Receive Date: 20121001
  Receipt Date: 20121001
  Transmission Date: 20130627
  Serious: Yes (Hospitalization)
  Sender: FDA-Public Use
  Company Number: 2012MA011625

PATIENT
  Age: 51 Year

DRUGS (4)
  1. CLONIDINE HYDROCHLORIDE [Suspect]
     Dosage: GT
  2. RILUZOLE (RILUZOLE) [Suspect]
     Dosage: GT
  3. GLYCOPYRRONIUM BROMIDE [Suspect]
  4. ATROPINE [Suspect]
     Route: 048

REACTIONS (2)
  - Feeding tube complication [None]
  - Excessive granulation tissue [None]
